FAERS Safety Report 5614313-9 (Version None)
Quarter: 2008Q1

REPORT INFORMATION
  Report Type: 
  Country: None (occurrence: None)
  Receive Date: 20080205
  Receipt Date: 20080124
  Transmission Date: 20080703
  Serious: Yes (Other)
  Sender: FDA-Public Use
  Company Number: IE-PFIZER INC-2007105321

PATIENT
  Sex: Female
  Weight: 78 kg

DRUGS (1)
  1. CHANTIX [Suspect]
     Indication: SMOKING CESSATION THERAPY
     Route: 048

REACTIONS (11)
  - DEPRESSION [None]
  - DYSGEUSIA [None]
  - IRRITABILITY [None]
  - MEMORY IMPAIRMENT [None]
  - NAUSEA [None]
  - NIGHTMARE [None]
  - PARAESTHESIA [None]
  - SLEEP DISORDER [None]
  - SUICIDAL IDEATION [None]
  - TOBACCO WITHDRAWAL SYMPTOMS [None]
  - VOMITING [None]
